FAERS Safety Report 8485059-7 (Version None)
Quarter: 2012Q2

REPORT INFORMATION
  Report Type: 
  Country: None (occurrence: None)
  Receive Date: 20120625
  Receipt Date: 20120612
  Transmission Date: 20120825
  Serious: Yes (Hospitalization)
  Sender: FDA-Public Use
  Company Number: UTC-019877

PATIENT
  Age: 56 Year
  Sex: Female
  Weight: 88.7 kg

DRUGS (3)
  1. ADCIRCA [Concomitant]
  2. REMODULIN [Suspect]
     Indication: COR PULMONALE CHRONIC
     Dosage: 25.92 UG/KG, (0.018 UG/KG, 1 IN 1 MIN), INTRAVENOUS
     Route: 042
     Dates: start: 20111123
  3. COUMADIN [Concomitant]

REACTIONS (2)
  - INFECTION [None]
  - NAUSEA [None]
